FAERS Safety Report 16907749 (Version 1)
Quarter: 2019Q4

REPORT INFORMATION
  Report Type: Spontaneous
  Country: FR (occurrence: FR)
  Receive Date: 20191011
  Receipt Date: 20191011
  Transmission Date: 20200122
  Serious: Yes (Hospitalization)
  Sender: FDA-Public Use
  Company Number: FR-ROCHE-2432876

PATIENT
  Age: 20 Year
  Sex: Male

DRUGS (11)
  1. RIVOTRIL [Suspect]
     Active Substance: CLONAZEPAM
     Indication: DELIRIUM
  2. THERALENE [Suspect]
     Active Substance: TRIMEPRAZINE
     Indication: DELIRIUM
     Dosage: LAST DOSE 05/SEP/2019
     Route: 048
     Dates: start: 20190821
  3. RIVOTRIL [Suspect]
     Active Substance: CLONAZEPAM
     Indication: DELIRIUM
     Dosage: LAST DOSE 06/SEP/2019
     Route: 030
     Dates: start: 20190821
  4. RIVOTRIL [Suspect]
     Active Substance: CLONAZEPAM
     Indication: DELIRIUM
  5. LEPTICUR [Suspect]
     Active Substance: TROPATEPINE HYDROCHLORIDE
     Indication: NEUROLEPTIC MALIGNANT SYNDROME
     Dosage: LAST DOSE 06/SEP/2019
     Route: 030
     Dates: start: 20190826
  6. AMISULPRIDE [Suspect]
     Active Substance: AMISULPRIDE
     Indication: DELIRIUM
     Dosage: LAST DOSE 05/SEP/2019
     Route: 048
     Dates: start: 201811
  7. SOLIAN [Concomitant]
     Active Substance: AMISULPRIDE
     Indication: DELIRIUM
     Dosage: LAST DOSE 05/SEP/2019
     Route: 030
     Dates: start: 20190830
  8. RISPERDAL [Suspect]
     Active Substance: RISPERIDONE
     Indication: DELIRIUM
     Dosage: LAST DOSE 28/AUG/2019
     Route: 048
     Dates: start: 20190821
  9. LOXAPAC [LOXAPINE] [Suspect]
     Active Substance: LOXAPINE
     Indication: DELIRIUM
     Dosage: LAST DOSE 28/AUG/2019
     Route: 030
     Dates: start: 20190821
  10. RIVOTRIL [Suspect]
     Active Substance: CLONAZEPAM
     Indication: DELIRIUM
     Dosage: LAST DOSE 06/SEP/2019
     Route: 048
     Dates: start: 20190821
  11. LOXAPAC [LOXAPINE] [Suspect]
     Active Substance: LOXAPINE
     Indication: DELIRIUM
     Route: 048
     Dates: start: 20190821

REACTIONS (3)
  - Blood creatine phosphokinase increased [Recovering/Resolving]
  - Transaminases increased [Recovered/Resolved]
  - Rhabdomyolysis [Recovering/Resolving]

NARRATIVE: CASE EVENT DATE: 20190828
